FAERS Safety Report 5515338-4 (Version None)
Quarter: 2007Q4

REPORT INFORMATION
  Report Type: 
  Country: None (occurrence: None)
  Receive Date: 20071109
  Receipt Date: 20071030
  Transmission Date: 20080405
  Serious: Yes (Hospitalization)
  Sender: FDA-Public Use
  Company Number: 2007BI018667

PATIENT
  Age: 30 Year
  Sex: Female

DRUGS (2)
  1. AVONEX [Suspect]
     Indication: MULTIPLE SCLEROSIS
     Dosage: 30 UG; QW; IM
     Route: 030
     Dates: start: 20030306, end: 20030612
  2. AVONEX [Suspect]
     Indication: MULTIPLE SCLEROSIS
     Dosage: 30 UG; QW; IM
     Route: 030
     Dates: start: 20041201

REACTIONS (11)
  - ADNEXA UTERI PAIN [None]
  - ANXIETY [None]
  - DEPRESSION [None]
  - FIBROMYALGIA [None]
  - MIGRAINE [None]
  - OVARIAN CYST [None]
  - OVARIAN ENLARGEMENT [None]
  - RESTLESS LEGS SYNDROME [None]
  - UTERINE ENLARGEMENT [None]
  - UTERINE NEOPLASM [None]
  - UTERINE PAIN [None]
